FAERS Safety Report 4316218-2 (Version None)
Quarter: 2004Q1

REPORT INFORMATION
  Report Type: 
  Country: None (occurrence: None)
  Receive Date: 20040312
  Receipt Date: 20040303
  Transmission Date: 20041129
  Serious: Yes (Life-Threatening)
  Sender: FDA-Public Use
  Company Number: WAES 0403USA00374

PATIENT
  Age: 57 Year
  Sex: Male

DRUGS (6)
  1. CRIXIVAN [Suspect]
     Indication: ACQUIRED IMMUNODEFICIENCY SYNDROME
     Route: 048
  2. LAMIVUDINE [Suspect]
     Indication: ACQUIRED IMMUNODEFICIENCY SYNDROME
  3. PACLITAXEL [Suspect]
     Indication: CHEMOTHERAPY
  4. PACLITAXEL [Suspect]
  5. RITONAVIR [Suspect]
     Indication: ACQUIRED IMMUNODEFICIENCY SYNDROME
  6. STAVUDINE [Suspect]
     Indication: ACQUIRED IMMUNODEFICIENCY SYNDROME

REACTIONS (6)
  - ALOPECIA [None]
  - DRUG INTERACTION INHIBITION [None]
  - DRUG TOXICITY [None]
  - KAPOSI'S SARCOMA [None]
  - PLATELET COUNT DECREASED [None]
  - WHITE BLOOD CELL COUNT DECREASED [None]
